FAERS Safety Report 14830952 (Version 2)
Quarter: 2018Q2

REPORT INFORMATION
  Report Type: Report from Study
  Country: BR (occurrence: BR)
  Receive Date: 20180430
  Receipt Date: 20180508
  Transmission Date: 20180711
  Serious: Yes (Hospitalization, Other)
  Sender: FDA-Public Use
  Company Number: PHHY2018BR071589

PATIENT
  Age: 37 Year
  Sex: Female
  Weight: 75 kg

DRUGS (6)
  1. ENALAPRIL [Concomitant]
     Active Substance: ENALAPRIL
     Indication: HYPERTENSION
     Dosage: 4 DF, QD
     Route: 048
     Dates: start: 2016
  2. COSENTYX [Suspect]
     Active Substance: SECUKINUMAB
     Indication: PSORIASIS
  3. QUETIAPINE. [Concomitant]
     Active Substance: QUETIAPINE
     Indication: AFFECTIVE DISORDER
     Dosage: 4 DF, QD
     Route: 048
     Dates: start: 201711
  4. VALPROIC ACID. [Concomitant]
     Active Substance: VALPROIC ACID
     Indication: PSORIATIC ARTHROPATHY
     Dosage: 3 DF, QD
     Route: 048
     Dates: start: 20180415
  5. COSENTYX [Suspect]
     Active Substance: SECUKINUMAB
     Indication: PSORIATIC ARTHROPATHY
     Dosage: 300 MG (PENS OF 150 MG), QMO
     Route: 058
     Dates: start: 20171214
  6. METHOTREXATE. [Concomitant]
     Active Substance: METHOTREXATE
     Indication: PSORIATIC ARTHROPATHY
     Dosage: 1 DF, QW
     Route: 030
     Dates: start: 201702

REACTIONS (19)
  - Dizziness [Unknown]
  - Intellectual disability [Unknown]
  - Epilepsy [Recovered/Resolved]
  - Feeling hot [Not Recovered/Not Resolved]
  - Aphasia [Recovering/Resolving]
  - Arthritis [Unknown]
  - Psoriasis [Unknown]
  - Movement disorder [Unknown]
  - Asthenia [Unknown]
  - Feeling abnormal [Unknown]
  - Gait disturbance [Unknown]
  - Headache [Not Recovered/Not Resolved]
  - Fear [Recovering/Resolving]
  - Sensory loss [Recovering/Resolving]
  - Hypoaesthesia [Unknown]
  - Vision blurred [Not Recovered/Not Resolved]
  - Skin burning sensation [Not Recovered/Not Resolved]
  - Nasopharyngitis [Unknown]
  - Sluggishness [Recovering/Resolving]

NARRATIVE: CASE EVENT DATE: 20180413
